FAERS Safety Report 7980327-7 (Version None)
Quarter: 2011Q4

REPORT INFORMATION
  Report Type: 
  Country: None (occurrence: None)
  Receive Date: 20111212
  Receipt Date: 20111130
  Transmission Date: 20120403
  Serious: Yes (Hospitalization)
  Sender: FDA-Public Use
  Company Number: TPA2011A08099

PATIENT
  Age: 69 Year
  Sex: Male
  Weight: 81.6475 kg

DRUGS (7)
  1. ACTOPLUS MET [Suspect]
     Indication: TYPE 2 DIABETES MELLITUS
     Dosage: 15 MG/850 MG QD, PER ORAL
     Route: 048
  2. NAPROXEN [Concomitant]
  3. VICODIN [Concomitant]
  4. LISINOPRIL [Concomitant]
  5. FLUOCINOLONE CREAM (FLUOCINOLONE ACETONIDE) [Concomitant]
  6. PROAIR INHALER (FLUTICASONE PROPIONATE) [Concomitant]
  7. FLOMAX [Concomitant]

REACTIONS (5)
  - PROCEDURAL SITE REACTION [None]
  - INFECTION [None]
  - ABDOMINAL HERNIA [None]
  - POST PROCEDURAL COMPLICATION [None]
  - CHOLELITHIASIS [None]
